FAERS Safety Report 7990343-7 (Version None)
Quarter: 2011Q4

REPORT INFORMATION
  Report Type: 
  Country: None (occurrence: None)
  Receive Date: 20111219
  Receipt Date: 20110509
  Transmission Date: 20120403
  Serious: No
  Sender: FDA-Public Use
  Company Number: US-ASTRAZENECA-2011SE27863

PATIENT
  Age: 57 Year
  Sex: Female

DRUGS (6)
  1. CRESTOR [Suspect]
     Indication: BLOOD CHOLESTEROL INCREASED
     Route: 048
     Dates: start: 20100101
  2. CRESTOR [Suspect]
     Route: 048
  3. UNSPECIFIED BLOOD PRESSURE MEDICATION [Concomitant]
     Indication: BLOOD PRESSURE
  4. VITAMIN D [Concomitant]
  5. ASA CHILDREN [Concomitant]
  6. SUGAR MEDICATION [Concomitant]
     Indication: BLOOD GLUCOSE ABNORMAL

REACTIONS (4)
  - LAZINESS [None]
  - MUSCLE FATIGUE [None]
  - FATIGUE [None]
  - MYALGIA [None]
